FAERS Safety Report 10010278 (Version 1)
Quarter: 2014Q1

REPORT INFORMATION
  Report Type: Spontaneous
  Country: US (occurrence: US)
  Receive Date: 20140314
  Receipt Date: 20140314
  Transmission Date: 20141002
  Serious: Yes (Other)
  Sender: FDA-Public Use
  Company Number: US-AMGEN-USASP2014017778

PATIENT
  Age: 61 Year
  Sex: Female

DRUGS (11)
  1. ENBREL [Suspect]
     Indication: PRODUCT USED FOR UNKNOWN INDICATION
     Dosage: 50 MG, UNK
     Route: 065
  2. CYMBALTA [Concomitant]
     Dosage: 20 MG, UNK
  3. FOSAMAX [Concomitant]
     Dosage: 10 MG, UNK
  4. PREDNISONE [Concomitant]
     Dosage: 10 MG, UNK
  5. ARAVA [Concomitant]
     Dosage: 10 MG, UNK
  6. BACLOFEN [Concomitant]
     Dosage: 10 MG, UNK
  7. FLONASE                            /00908302/ [Concomitant]
     Dosage: 0.05 %, UNK
  8. OXYCODONE [Concomitant]
     Dosage: 5 MG, UNK
  9. ZANTAC [Concomitant]
     Dosage: 75 UNK, UNK
  10. CLARITIN-D [Concomitant]
     Dosage: 10-240 MG, UNK
  11. OXYCONTIN [Concomitant]
     Dosage: 10 MG, UNK

REACTIONS (1)
  - Staphylococcal osteomyelitis [Unknown]
